FAERS Safety Report 21950133 (Version 1)
Quarter: 2023Q1

REPORT INFORMATION
  Report Type: Spontaneous
  Country: US (occurrence: None)
  Receive Date: 20230202
  Receipt Date: 20230202
  Transmission Date: 20230417
  Serious: Yes (unspecified)
  Sender: FDA-Public Use
  Company Number: None

PATIENT
  Age: 57 Year
  Sex: Male
  Weight: 94.2 kg

DRUGS (1)
  1. LEVOFLOXACIN [Suspect]
     Active Substance: LEVOFLOXACIN
     Indication: Pneumonia
     Dosage: FREQUENCY : DAILY;?
     Route: 041
     Dates: start: 20230119, end: 20230119

REACTIONS (2)
  - Infusion site pruritus [None]
  - Infusion related reaction [None]

NARRATIVE: CASE EVENT DATE: 20230119
